FAERS Safety Report 9311845 (Version 1)
Quarter: 2013Q1

REPORT INFORMATION
  Report Type: Spontaneous
  Country: CA (occurrence: None)
  Receive Date: 20130213
  Receipt Date: 20130213
  Transmission Date: 20140127
  Serious: Yes (Other)
  Sender: FDA-Public Use
  Company Number: 2012034185

PATIENT
  Age: 76 Year
  Sex: Female

DRUGS (5)
  1. PRIVIGEN [Suspect]
     Dosage: INTRAVENOUS (ONT OTHERWISE SPECIFIED)?1 DAY
     Route: 042
  2. BROMOCRIPTINE (BROMOCRIPTINE) [Concomitant]
  3. CALCIUM W/VITAMINS NOS (CALCIUM W/VITAMINS NOS) [Concomitant]
  4. PREDNISONE (PREDNISONE) [Concomitant]
  5. TRANEXAMIC ACID (TRANEXAMIC ACID) [Concomitant]

REACTIONS (2)
  - Anti-erythrocyte antibody positive [None]
  - Haemolysis [None]
